FAERS Safety Report 21410307 (Version 1)
Quarter: 2022Q4

REPORT INFORMATION
  Report Type: Spontaneous
  Country: CN (occurrence: CN)
  Receive Date: 20221005
  Receipt Date: 20221005
  Transmission Date: 20230113
  Serious: Yes (Hospitalization, Other)
  Sender: FDA-Public Use
  Company Number: None

PATIENT
  Age: 50 Year
  Sex: Female
  Weight: 68 kg

DRUGS (6)
  1. CYCLOPHOSPHAMIDE [Suspect]
     Active Substance: CYCLOPHOSPHAMIDE
     Indication: Breast cancer female
     Dosage: 900 MG ONCE DAILY DILUTED WITH 100 ML OF 0.9% SODIUM CHLORIDE INJECTION, D1, Q14D
     Route: 041
     Dates: start: 20220905, end: 20220905
  2. SODIUM CHLORIDE [Suspect]
     Active Substance: SODIUM CHLORIDE
     Indication: Medication dilution
     Dosage: 100 ML ONCE A DAILY, DILUTED IN 900 MG OF CYCLOPHOSPHAMIDE POWDER INJECTION
     Route: 041
     Dates: start: 20220905, end: 20220905
  3. DEXTROSE MONOHYDRATE [Suspect]
     Active Substance: DEXTROSE MONOHYDRATE
     Indication: Medication dilution
     Dosage: 100 ML ONCE A DAILY, DILUTED IN 90 MG OF PIRARUBICIN HYDROCHLORIDE POWDER INJECTION, D1
     Route: 041
     Dates: start: 20220905, end: 20220905
  4. PIRARUBICIN HYDROCHLORIDE [Suspect]
     Active Substance: PIRARUBICIN HYDROCHLORIDE
     Indication: Breast cancer female
     Dosage: 90 MG ONCE DAILY DILUTED WITH 100 ML OF 5% GLUCOSE INJECTION
     Route: 041
     Dates: start: 20220905, end: 20220905
  5. SILIBININ [Concomitant]
     Active Substance: SILIBININ
     Indication: Prophylaxis
     Dosage: 100 MG, TID
     Route: 048
  6. GLUCUROLACTONE [Concomitant]
     Active Substance: GLUCUROLACTONE
     Indication: Prophylaxis
     Dosage: 100 MG, TID
     Route: 048

REACTIONS (2)
  - Hepatic function abnormal [Recovered/Resolved]
  - Liver injury [Unknown]

NARRATIVE: CASE EVENT DATE: 20220919
